FAERS Safety Report 5298660-9 (Version None)
Quarter: 2007Q2

REPORT INFORMATION
  Report Type: 
  Country: None (occurrence: None)
  Receive Date: 20070417
  Receipt Date: 20070411
  Transmission Date: 20071010
  Serious: Yes (Other)
  Sender: FDA-Public Use
  Company Number: GB-AVENTIS-200711806EU

PATIENT
  Sex: Male

DRUGS (2)
  1. CLEXANE [Suspect]
     Indication: DRUG USE FOR UNKNOWN INDICATION
     Route: 058
  2. CO-CODAMOL [Concomitant]
     Dosage: DOSE: 8 DF

REACTIONS (2)
  - FAT NECROSIS [None]
  - SUBCUTANEOUS NODULE [None]
